FAERS Safety Report 5142672-2 (Version None)
Quarter: 2006Q4

REPORT INFORMATION
  Report Type: 
  Country: None (occurrence: None)
  Receive Date: 20061027
  Receipt Date: 20061013
  Transmission Date: 20070319
  Serious: Yes (Hospitalization)
  Sender: FDA-Public Use
  Company Number: 2006EN000185

PATIENT
  Age: 75 Year
  Sex: Female

DRUGS (4)
  1. ONCASPAR [Suspect]
     Indication: DRUG USE FOR UNKNOWN INDICATION
     Dosage: 1245 IU;UNKNOWN;IV
     Route: 042
     Dates: start: 20060925, end: 20060925
  2. ONCASPAR [Suspect]
     Indication: DRUG USE FOR UNKNOWN INDICATION
     Dosage: 1245 IU;UNKNOWN;IV
     Route: 042
     Dates: start: 20061009, end: 20061009
  3. ONCASPAR [Suspect]
     Indication: DRUG USE FOR UNKNOWN INDICATION
     Dosage: 1245 IU;UNKNOWN;IV
     Route: 042
     Dates: start: 20061009, end: 20061009
  4. GEMCITABINE [Suspect]
     Indication: DRUG USE FOR UNKNOWN INDICATION
     Dosage: 1666 MG; UNKNOWN; IV
     Route: 042
     Dates: start: 20061002, end: 20061002

REACTIONS (4)
  - ABASIA [None]
  - ACTIVITIES OF DAILY LIVING IMPAIRED [None]
  - ASTHENIA [None]
  - POLYNEUROPATHY [None]
